FAERS Safety Report 12198176 (Version 1)
Quarter: 2016Q1

REPORT INFORMATION
  Report Type: Spontaneous
  Country: US (occurrence: US)
  Receive Date: 20160322
  Receipt Date: 20160322
  Transmission Date: 20160526
  Serious: No
  Sender: FDA-Public Use
  Company Number: US-JNJFOC-20160306963

PATIENT
  Age: 70 Year
  Sex: Female

DRUGS (1)
  1. TERCONAZOLE. [Suspect]
     Active Substance: TERCONAZOLE
     Indication: FUNGAL INFECTION
     Route: 067
     Dates: start: 20150921

REACTIONS (1)
  - Vaginal discharge [Not Recovered/Not Resolved]

NARRATIVE: CASE EVENT DATE: 20150921
